FAERS Safety Report 6665718-9 (Version None)
Quarter: 2010Q2

REPORT INFORMATION
  Report Type: 
  Country: None (occurrence: None)
  Receive Date: 20100402
  Receipt Date: 20100324
  Transmission Date: 20101027
  Serious: Yes (Other)
  Sender: FDA-Public Use
  Company Number: GB-JNJFOC-20100204602

PATIENT
  Sex: Female
  Weight: 60 kg

DRUGS (7)
  1. DARUNAVIR [Suspect]
     Indication: HIV INFECTION
     Route: 048
  2. ETRAVIRINE [Suspect]
     Indication: HIV INFECTION
     Route: 048
  3. TENOFOVIR [Suspect]
     Indication: HIV INFECTION
     Route: 048
  4. RALTEGRAVIR [Suspect]
     Indication: HIV INFECTION
     Route: 048
  5. MARAVIROC [Suspect]
     Indication: HIV INFECTION
     Route: 048
  6. LAMIVUDINE [Suspect]
     Indication: HIV INFECTION
     Route: 065
  7. RITONAVIR [Suspect]
     Indication: HIV INFECTION
     Route: 065

REACTIONS (3)
  - HYPERLIPIDAEMIA [None]
  - PROTEINURIA [None]
  - TYPE 2 DIABETES MELLITUS [None]
